FAERS Safety Report 8855423 (Version 2)
Quarter: 2013Q2

REPORT INFORMATION
  Report Type: Spontaneous
  Country: US (occurrence: US)
  Receive Date: 20121023
  Receipt Date: 20130507
  Transmission Date: 20140414
  Serious: Yes (Other)
  Sender: FDA-Public Use
  Company Number: US-AMGEN-USASP2012001284

PATIENT
  Age: 60 Year
  Sex: Female

DRUGS (2)
  1. ENBREL [Suspect]
     Indication: RHEUMATOID ARTHRITIS
     Dosage: 50 MG, QWK
     Dates: start: 20111220
  2. METHOTREXATE [Concomitant]
     Dosage: 17.5 MG, QWK
     Route: 048
     Dates: start: 2011

REACTIONS (18)
  - Drug eruption [Recovered/Resolved]
  - Thrombosis [Recovered/Resolved]
  - Alopecia [Not Recovered/Not Resolved]
  - Arthralgia [Not Recovered/Not Resolved]
  - Mobility decreased [Not Recovered/Not Resolved]
  - Musculoskeletal discomfort [Not Recovered/Not Resolved]
  - Pain [Not Recovered/Not Resolved]
  - Musculoskeletal stiffness [Not Recovered/Not Resolved]
  - Somnolence [Not Recovered/Not Resolved]
  - Weight decreased [Recovered/Resolved]
  - Periarthritis [Not Recovered/Not Resolved]
  - Chondrolysis [Not Recovered/Not Resolved]
  - Joint destruction [Not Recovered/Not Resolved]
  - Rash [Recovered/Resolved]
  - Protein total increased [Recovered/Resolved]
  - Nodule [Not Recovered/Not Resolved]
  - Finger deformity [Not Recovered/Not Resolved]
  - Injection site erythema [Recovered/Resolved]
